FAERS Safety Report 7599940-4 (Version None)
Quarter: 2011Q3

REPORT INFORMATION
  Report Type: 
  Country: None (occurrence: None)
  Receive Date: 20110711
  Receipt Date: 20110628
  Transmission Date: 20111222
  Serious: Yes (Life-Threatening, Hospitalization)
  Sender: FDA-Public Use
  Company Number: CH-JNJFOC-20110604154

PATIENT
  Sex: Male
  Weight: 84 kg

DRUGS (5)
  1. BUPRENORPHINE [Concomitant]
     Indication: PAIN
     Dosage: DOSE: 1/4
     Route: 065
     Dates: start: 20110525
  2. NEXIUM [Concomitant]
     Indication: GASTRITIS
     Route: 048
     Dates: start: 20110107
  3. ABIRATERONE ACETATE [Suspect]
     Indication: PROSTATE CANCER METASTATIC
     Route: 048
     Dates: start: 20110415
  4. INSPRA [Concomitant]
     Indication: OEDEMA
     Route: 048
     Dates: start: 20110421
  5. ABIRATERONE ACETATE [Suspect]
     Route: 048

REACTIONS (1)
  - PULMONARY EMBOLISM [None]
